FAERS Safety Report 7831750-2 (Version None)
Quarter: 2011Q4

REPORT INFORMATION
  Report Type: 
  Country: None (occurrence: None)
  Receive Date: 20111021
  Receipt Date: 20111011
  Transmission Date: 20120403
  Serious: Yes (Life-Threatening, Hospitalization)
  Sender: FDA-Public Use
  Company Number: DE-JNJFOC-20111008733

PATIENT
  Age: 84 Year
  Sex: Female

DRUGS (6)
  1. REPAGLINIDE [Concomitant]
     Dates: start: 20100121, end: 20110824
  2. PANTOPRAZOLE SODIUM [Concomitant]
     Dates: start: 20081201
  3. METOCLOPRAMIDE [Concomitant]
     Dates: start: 20090501, end: 20110101
  4. RAMIPRIL [Suspect]
     Indication: PRODUCT USED FOR UNKNOWN INDICATION
     Route: 048
     Dates: start: 20100421, end: 20110824
  5. IBUPROFEN [Suspect]
     Indication: PRODUCT USED FOR UNKNOWN INDICATION
     Route: 048
     Dates: start: 20090101, end: 20110824
  6. BROMAZEPAM [Concomitant]
     Dates: start: 20090101, end: 20110824

REACTIONS (2)
  - BLOOD URIC ACID INCREASED [None]
  - RENAL FAILURE ACUTE [None]
